FAERS Safety Report 4649614-4 (Version None)
Quarter: 2005Q2

REPORT INFORMATION
  Report Type: 
  Country: None (occurrence: None)
  Receive Date: 20050427
  Receipt Date: 20050415
  Transmission Date: 20051028
  Serious: No
  Sender: FDA-Public Use
  Company Number: 05P-028-0297669-00

PATIENT
  Age: 47 Year
  Sex: Male
  Weight: 90 kg

DRUGS (10)
  1. HUMIRA [Suspect]
     Indication: ANKYLOSING SPONDYLITIS
     Dosage: SEE IMAGE
     Route: 058
     Dates: start: 20040324, end: 20040825
  2. ATENOLOL [Concomitant]
  3. CORBOCAL [Concomitant]
  4. VENLAFAXINE HCL [Concomitant]
  5. PARACETAMOL [Concomitant]
  6. ISOSORBIDE DINITRATE [Concomitant]
  7. TELMISARTAN [Concomitant]
  8. ARTHROTEC [Concomitant]
  9. PANTOPRAZOLE SODIUM [Concomitant]
  10. CODEINE CONTIN [Concomitant]

REACTIONS (1)
  - LYMPHANGIOMA [None]
